FAERS Safety Report 4334337-1 (Version None)
Quarter: 2004Q2

REPORT INFORMATION
  Report Type: 
  Country: None (occurrence: None)
  Receive Date: 20040405
  Receipt Date: 20040318
  Transmission Date: 20050107
  Serious: Yes (Hospitalization)
  Sender: FDA-Public Use
  Company Number: D01200400925

PATIENT
  Age: 73 Year
  Sex: Male

DRUGS (9)
  1. (OXALIPLATIN) - SOLUTION - 85 MG/M2 [Suspect]
     Dosage: 85 MG/M2 Q2W; INTRAVENOUS NOS
     Route: 042
     Dates: start: 20040308, end: 20040308
  2. FLUOROURACIL [Suspect]
     Dosage: 400 MG/M2 AS IV BOLUS THEN 600 MG/M2 AS 22 HOURS CONTINUOUS INFUSION D1-D2 Q2W; INTRAVENOUS NOS
     Route: 042
     Dates: start: 20040308, end: 20040309
  3. (SR57746 OR PLACEBO) - CAPSULE - 1 MG [Suspect]
     Indication: NEUROTOXICITY
     Dosage: 1 MG QD
     Route: 048
     Dates: start: 20040209, end: 20040317
  4. LEUCOVORIN CALCIUM [Suspect]
     Dosage: 20 MG/M2 AS 2 HOURS INFUSION ON D1-D2 Q2W; INTRAVENOUS NOS
     Route: 042
     Dates: start: 20040308, end: 20040309
  5. HYOSCINE HBR HYT [Concomitant]
  6. ASPIRIN [Concomitant]
  7. CEFUROXIME AXETIL [Concomitant]
  8. ACETAMINOPHEN [Concomitant]
  9. XANAX [Concomitant]

REACTIONS (8)
  - CHOLECYSTITIS [None]
  - CONSTIPATION [None]
  - ENTEROCOLITIS [None]
  - HAEMOGLOBIN DECREASED [None]
  - HYDROCHOLECYSTIS [None]
  - NEUTROPENIA [None]
  - PLATELET COUNT DECREASED [None]
  - WHITE BLOOD CELL COUNT DECREASED [None]
